FAERS Safety Report 14937487 (Version 2)
Quarter: 2018Q3

REPORT INFORMATION
  Report Type: Spontaneous
  Country: US (occurrence: US)
  Receive Date: 20180525
  Receipt Date: 20180703
  Transmission Date: 20181010
  Serious: Yes (Other)
  Sender: FDA-Public Use
  Company Number: US-AMGEN-USASP2018069289

PATIENT
  Age: 80 Year
  Sex: Female

DRUGS (1)
  1. ENBREL [Suspect]
     Active Substance: ETANERCEPT
     Indication: PSORIASIS
     Dosage: 50 MG, UNK (EVERY 4 DAYS)
     Route: 065

REACTIONS (8)
  - Injection site pain [Unknown]
  - Off label use [Unknown]
  - Injection site haemorrhage [Unknown]
  - Psoriasis [Not Recovered/Not Resolved]
  - Wrong technique in product usage process [Unknown]
  - Food allergy [Unknown]
  - Musculoskeletal disorder [Unknown]
  - Disability [Unknown]

NARRATIVE: CASE EVENT DATE: 201805
